FAERS Safety Report 6250543-3 (Version None)
Quarter: 2009Q2

REPORT INFORMATION
  Report Type: 
  Country: None (occurrence: None)
  Receive Date: 20090630
  Receipt Date: 20090619
  Transmission Date: 20091009
  Serious: Yes (Death, Hospitalization)
  Sender: FDA-Public Use
  Company Number: BR-PFIZER INC-2007053138

PATIENT
  Sex: Male
  Weight: 74 kg

DRUGS (6)
  1. SUNITINIB MALATE [Suspect]
     Indication: METASTATIC RENAL CELL CARCINOMA
     Dates: end: 20070621
  2. DIOSMIN [Concomitant]
     Route: 048
     Dates: start: 20060425
  3. METOCLOPRAMIDE [Concomitant]
     Route: 048
     Dates: start: 20060416
  4. PROCTYL [Concomitant]
     Route: 054
     Dates: start: 20060325
  5. ALLOPURINOL [Concomitant]
     Route: 048
     Dates: start: 20060901
  6. OMEPRAZOLE [Concomitant]
     Route: 048
     Dates: start: 20061205

REACTIONS (5)
  - ANAEMIA [None]
  - LEUKOPENIA [None]
  - NECROTISING FASCIITIS [None]
  - RECTAL ABSCESS [None]
  - RESPIRATORY FAILURE [None]
